FAERS Safety Report 13502982 (Version 3)
Quarter: 2017Q2

REPORT INFORMATION
  Report Type: Spontaneous
  Country: IE (occurrence: IE)
  Receive Date: 20170502
  Receipt Date: 20170510
  Transmission Date: 20170830
  Serious: Yes (Hospitalization, Other)
  Sender: FDA-Public Use
  Company Number: IE-MYLANLABS-2017M1026533

PATIENT

DRUGS (8)
  1. PROCYCLIDINE [Concomitant]
     Active Substance: PROCYCLIDINE
     Indication: EXTRAPYRAMIDAL DISORDER
     Dosage: 2.5 MG, TID
     Route: 048
     Dates: start: 201703
  2. ZOLPIDEM [Concomitant]
     Active Substance: ZOLPIDEM\ZOLPIDEM TARTRATE
     Indication: SEDATION
     Dosage: 20 MG, PM
     Route: 048
  3. CLOZARIL [Suspect]
     Active Substance: CLOZAPINE
     Dosage: 150 MG, BID
     Route: 048
     Dates: start: 201703
  4. EPILIM [Concomitant]
     Active Substance: VALPROATE SODIUM
     Indication: SCHIZOAFFECTIVE DISORDER
     Dosage: 800 MG, PM
     Route: 048
     Dates: start: 2016
  5. HALOPERIDOL. [Concomitant]
     Active Substance: HALOPERIDOL
     Indication: ANTIPSYCHOTIC DRUG LEVEL INCREASED
     Dosage: 3 MG, BID
     Route: 048
     Dates: start: 201703
  6. EPILIM [Concomitant]
     Active Substance: VALPROATE SODIUM
     Dosage: UNK
     Route: 048
     Dates: start: 2017
  7. CLOZARIL [Suspect]
     Active Substance: CLOZAPINE
     Indication: SCHIZOAFFECTIVE DISORDER
     Dosage: 450 MG, QD
     Route: 048
     Dates: start: 2017
  8. CLOZARIL [Suspect]
     Active Substance: CLOZAPINE
     Indication: SCHIZOPHRENIA
     Dosage: 150 MG, BID
     Route: 048
     Dates: start: 20130723

REACTIONS (6)
  - Mania [Unknown]
  - Therapy cessation [Recovered/Resolved]
  - Gastroenteritis salmonella [Recovering/Resolving]
  - Antipsychotic drug level decreased [Unknown]
  - Binge drinking [Unknown]
  - Megacolon [Recovering/Resolving]

NARRATIVE: CASE EVENT DATE: 2017
